FAERS Safety Report 10478500 (Version 1)
Quarter: 2014Q3

REPORT INFORMATION
  Report Type: Spontaneous
  Country: US (occurrence: None)
  Receive Date: 20140925
  Receipt Date: 20140925
  Transmission Date: 20150326
  Serious: Yes (Hospitalization)
  Sender: FDA-Public Use
  Company Number: None

PATIENT
  Age: 46 Year
  Sex: Female
  Weight: 58.97 kg

DRUGS (1)
  1. ZONISAMIDE 100MG SUN [Suspect]
     Active Substance: ZONISAMIDE
     Indication: CONVULSION PROPHYLAXIS
     Dosage: 2 CAPS DAILY AT BEDTIME TAKEN BY MOUTH
     Route: 048
     Dates: start: 20140808, end: 20140909

REACTIONS (1)
  - Appendicitis [None]

NARRATIVE: CASE EVENT DATE: 20140909
